FAERS Safety Report 6020414-6 (Version None)
Quarter: 2008Q4

REPORT INFORMATION
  Report Type: 
  Country: None (occurrence: None)
  Receive Date: 20081226
  Receipt Date: 20081215
  Transmission Date: 20090506
  Serious: Yes (Hospitalization, Other)
  Sender: FDA-Public Use
  Company Number: AR-BRISTOL-MYERS SQUIBB COMPANY-14445449

PATIENT
  Age: 44 Year
  Sex: Female

DRUGS (7)
  1. DAPAGLIFLOZIN [Suspect]
     Indication: TYPE 2 DIABETES MELLITUS
     Route: 048
     Dates: start: 20080731, end: 20081207
  2. GLIPIZIDE [Suspect]
     Indication: TYPE 2 DIABETES MELLITUS
     Route: 048
     Dates: start: 20080731, end: 20081207
  3. METFORMIN HCL [Suspect]
     Indication: TYPE 2 DIABETES MELLITUS
     Route: 048
  4. PLACEBO [Suspect]
     Indication: TYPE 2 DIABETES MELLITUS
     Route: 048
     Dates: start: 20080731, end: 20081207
  5. CARVEDILOL [Concomitant]
     Indication: HYPERTENSION
     Dosage: STOPPED ON 11DEC08 AND RESTARTED ON 12DEC08.
     Route: 048
     Dates: start: 20080608, end: 20081211
  6. ENALAPRIL MALEATE [Concomitant]
     Indication: HYPERTENSION
     Dosage: STOPPED ON 11DEC08 AND RESTARTED ON 12DEC08.
     Route: 048
     Dates: end: 20081211
  7. ACETYLSALICYLIC ACID SRT [Concomitant]
     Indication: PROPHYLAXIS
     Dosage: STOPPED ON 11DEC08 AND RESTARTED ON 12DEC08.
     Route: 048
     Dates: end: 20081211

REACTIONS (1)
  - VENTRICULAR ARRHYTHMIA [None]
